FAERS Safety Report 7673265-0 (Version None)
Quarter: 2011Q3

REPORT INFORMATION
  Report Type: 
  Country: None (occurrence: None)
  Receive Date: 20110804
  Receipt Date: 20110720
  Transmission Date: 20111222
  Serious: Yes (Other)
  Sender: FDA-Public Use
  Company Number: 2011MA009190

PATIENT
  Age: 1 Month
  Sex: Female
  Weight: 31.5 kg

DRUGS (2)
  1. PROPYLTHIOURACIL TAB [Suspect]
     Indication: HYPOTHYROIDISM
     Dosage: 50 MG, QD,
  2. PROPRANOLOL [Suspect]
     Indication: BASEDOW'S DISEASE

REACTIONS (6)
  - BLOOD THYROID STIMULATING HORMONE DECREASED [None]
  - MATERNAL DRUGS AFFECTING FOETUS [None]
  - THYROID DISORDER [None]
  - PLACENTAL INFARCTION [None]
  - APLASIA CUTIS CONGENITA [None]
  - ANTI-THYROID ANTIBODY POSITIVE [None]
